FAERS Safety Report 25508703 (Version 1)
Quarter: 2025Q3

REPORT INFORMATION
  Report Type: Spontaneous
  Country: US (occurrence: US)
  Receive Date: 20250703
  Receipt Date: 20250703
  Transmission Date: 20251020
  Serious: No
  Sender: ROCHE
  Company Number: US-ROCHE-10000327310

PATIENT
  Sex: Female

DRUGS (1)
  1. ERIVEDGE [Suspect]
     Active Substance: VISMODEGIB
     Indication: Malignant neoplasm of unknown primary site
     Route: 048
     Dates: start: 202502

REACTIONS (4)
  - Feeling cold [Unknown]
  - Asthenia [Unknown]
  - Tachycardia [Unknown]
  - Alopecia [Unknown]
